FAERS Safety Report 6452963-0 (Version None)
Quarter: 2009Q4

REPORT INFORMATION
  Report Type: 
  Country: None (occurrence: None)
  Receive Date: 20091124
  Receipt Date: 20091118
  Transmission Date: 20100525
  Serious: Yes (Death)
  Sender: FDA-Public Use
  Company Number: PHEH2009US16214

PATIENT
  Sex: Female

DRUGS (5)
  1. GLEEVEC [Suspect]
     Indication: LEUKAEMIA IN REMISSION
     Dosage: 400 MG, QD
     Route: 048
     Dates: start: 20070905
  2. STALEVO 100 [Concomitant]
  3. METOPROLOL TARTRATE [Concomitant]
  4. SELEGILINE HCL [Concomitant]
  5. FUROSEMIDE [Concomitant]

REACTIONS (1)
  - DEATH [None]
